FAERS Safety Report 13209968 (Version 1)
Quarter: 2017Q1

REPORT INFORMATION
  Report Type: Spontaneous
  Country: US (occurrence: US)
  Receive Date: 20170210
  Receipt Date: 20170210
  Transmission Date: 20170428
  Serious: Yes (Other)
  Sender: FDA-Public Use
  Company Number: US-ACADIA PHARMACEUTICALS INC.-ACA-2017-002165

PATIENT
  Age: 87 Year
  Sex: Male
  Weight: 79.82 kg

DRUGS (3)
  1. NUPLAZID [Suspect]
     Active Substance: PIMAVANSERIN TARTRATE
     Indication: DELUSION
  2. NUPLAZID [Suspect]
     Active Substance: PIMAVANSERIN TARTRATE
     Indication: PARKINSON^S DISEASE PSYCHOSIS
  3. NUPLAZID [Suspect]
     Active Substance: PIMAVANSERIN TARTRATE
     Indication: HALLUCINATION
     Dosage: 34 MG, QD
     Route: 048
     Dates: start: 201608

REACTIONS (8)
  - Pneumonia [Unknown]
  - Insomnia [Unknown]
  - Abnormal dreams [Unknown]
  - Decreased appetite [Unknown]
  - Hallucination [Unknown]
  - Nasopharyngitis [Unknown]
  - Gout [Unknown]
  - Agitation [Unknown]

NARRATIVE: CASE EVENT DATE: 201701
